APPROVED DRUG PRODUCT: HARLIKU
Active Ingredient: NITISINONE
Strength: 2MG
Dosage Form/Route: TABLET;ORAL
Application: N209449 | Product #004
Applicant: CYCLE PHARMACEUTICALS LTD
Approved: Jun 10, 2025 | RLD: Yes | RS: Yes | Type: RX